FAERS Safety Report 16351510 (Version 1)
Quarter: 2019Q3

REPORT INFORMATION
  Report Type: Spontaneous
  Country: US (occurrence: US)
  Receive Date: 20190523
  Receipt Date: 20190523
  Transmission Date: 20191004
  Serious: Yes (Disabling)
  Sender: FDA-Public Use
  Company Number: None

PATIENT
  Age: 61 Year
  Sex: Female
  Weight: 46.35 kg

DRUGS (10)
  1. VITAMIN B12 [Concomitant]
     Active Substance: CYANOCOBALAMIN
  2. BENFOTIAMINE [Concomitant]
     Active Substance: BENFOTIAMINE
  3. LIALDA [Concomitant]
     Active Substance: MESALAMINE
  4. HUMIRA [Concomitant]
     Active Substance: ADALIMUMAB
  5. LYRICA [Suspect]
     Active Substance: PREGABALIN
     Indication: NEURALGIA
     Route: 048
     Dates: start: 20090924, end: 20170615
  6. ALPHA LIPOIC ACID [Concomitant]
     Active Substance: .ALPHA.-LIPOIC ACID
  7. ESTROGEN [Concomitant]
     Active Substance: ESTROGENS
  8. ACIPHEX [Concomitant]
     Active Substance: RABEPRAZOLE SODIUM
  9. PROGESTRONE [Concomitant]
  10. CHINESE HERBS [Concomitant]
     Active Substance: HERBALS

REACTIONS (18)
  - Feeling abnormal [None]
  - Taste disorder [None]
  - Aphasia [None]
  - Drug withdrawal syndrome [None]
  - Dysphagia [None]
  - Impaired work ability [None]
  - Sleep disorder [None]
  - Vitreous detachment [None]
  - Visual impairment [None]
  - Balance disorder [None]
  - Weight decreased [None]
  - Dysarthria [None]
  - Vertigo [None]
  - Parosmia [None]
  - Thinking abnormal [None]
  - Cough [None]
  - Pruritus generalised [None]
  - Pain [None]

NARRATIVE: CASE EVENT DATE: 20170615
